FAERS Safety Report 21099362 (Version 1)
Quarter: 2022Q3

REPORT INFORMATION
  Report Type: Spontaneous
  Country: FR (occurrence: FR)
  Receive Date: 20220719
  Receipt Date: 20220719
  Transmission Date: 20221027
  Serious: Yes (Death)
  Sender: FDA-Public Use
  Company Number: None

PATIENT
  Age: 89 Year
  Sex: Male

DRUGS (2)
  1. PAXLOVID [Suspect]
     Active Substance: NIRMATRELVIR\RITONAVIR
     Indication: COVID-19 treatment
     Dosage: 1 DF, ALTERNATE DAY
     Route: 048
     Dates: start: 20220624, end: 20220625
  2. CORGARD [Suspect]
     Active Substance: NADOLOL
     Indication: Atrial fibrillation
     Dosage: 80 MG, 1X/DAY
     Route: 048
     Dates: start: 20220623, end: 20220625

REACTIONS (2)
  - Cardio-respiratory arrest [Fatal]
  - Off label use [Unknown]

NARRATIVE: CASE EVENT DATE: 20220624
